FAERS Safety Report 8826596 (Version 1)
Quarter: 2012Q4

REPORT INFORMATION
  Report Type: 
  Country: DE (occurrence: DE)
  Receive Date: 20121005
  Receipt Date: 20121005
  Transmission Date: 20130627
  Serious: Yes (Other)
  Sender: FDA-Public Use
  Company Number: GXKR2012DE003127

PATIENT

DRUGS (7)
  1. CLINDAMYCIN [Suspect]
     Indication: OSTEITIS
     Dosage: 300 mg, TID
     Route: 048
  2. ACETYLSALICYLIC ACID [Concomitant]
  3. MOLSIDOMINE [Concomitant]
  4. CLOPIDOGREL [Concomitant]
  5. TAMSULOSIN [Concomitant]
  6. BISOPROLOL [Concomitant]
  7. LISINOPRIL [Concomitant]

REACTIONS (2)
  - Paralysis [Recovered/Resolved]
  - Oedema peripheral [Recovered/Resolved]
